FAERS Safety Report 15783465 (Version 1)
Quarter: 2019Q1

REPORT INFORMATION
  Report Type: Spontaneous
  Country: BR (occurrence: BR)
  Receive Date: 20190102
  Receipt Date: 20190102
  Transmission Date: 20190417
  Serious: Yes (Hospitalization)
  Sender: FDA-Public Use
  Company Number: BR-SA-2018SA397468

PATIENT
  Sex: Female
  Weight: 2.67 kg

DRUGS (1)
  1. CLEXANE [Suspect]
     Active Substance: ENOXAPARIN SODIUM
     Dosage: UNK UNK, UNK
     Route: 064

REACTIONS (7)
  - Tachycardia [Unknown]
  - Cyanosis [Unknown]
  - Continuous positive airway pressure [Unknown]
  - Foetal exposure during pregnancy [Unknown]
  - Enteral nutrition [Unknown]
  - Hospitalisation [Unknown]
  - Foetal distress syndrome [Unknown]

NARRATIVE: CASE EVENT DATE: 20181027
